FAERS Safety Report 7518571-5 (Version None)
Quarter: 2011Q2

REPORT INFORMATION
  Report Type: 
  Country: None (occurrence: None)
  Receive Date: 20110601
  Receipt Date: 20110601
  Transmission Date: 20111010
  Serious: Yes (Other)
  Sender: FDA-Public Use
  Company Number: None

PATIENT
  Age: 61 Year
  Sex: Female
  Weight: 61.2356 kg

DRUGS (1)
  1. ZOLPIDEM [Suspect]
     Indication: SLEEP DISORDER
     Dosage: 10MG ONE TABLET NIGHTLY PO
     Route: 048
     Dates: start: 20090301, end: 20100401

REACTIONS (8)
  - HYPOPHAGIA [None]
  - SINUS DISORDER [None]
  - HOT FLUSH [None]
  - GASTROOESOPHAGEAL REFLUX DISEASE [None]
  - GENERAL PHYSICAL HEALTH DETERIORATION [None]
  - PULMONARY CONGESTION [None]
  - WEIGHT DECREASED [None]
  - PHARYNGEAL DISORDER [None]
